FAERS Safety Report 9417474 (Version 1)
Quarter: 2013Q3

REPORT INFORMATION
  Report Type: Spontaneous
  Country: US (occurrence: None)
  Receive Date: 20130722
  Receipt Date: 20130722
  Transmission Date: 20140515
  Serious: Yes (Other)
  Sender: FDA-Public Use
  Company Number: None

PATIENT
  Age: 23 Year
  Sex: Female
  Weight: 52.62 kg

DRUGS (2)
  1. METHYLPHENIDATE [Suspect]
     Indication: ATTENTION DEFICIT/HYPERACTIVITY DISORDER
     Dosage: 36 MG, QAM, PO
     Route: 048
     Dates: start: 20130615, end: 20130625
  2. METHYLPHENIDATE [Suspect]
     Dosage: 36 MG, QAM, PO
     Route: 048
     Dates: start: 20130615, end: 20130625

REACTIONS (4)
  - Depression [None]
  - Suicidal behaviour [None]
  - Therapeutic response unexpected with drug substitution [None]
  - Product substitution issue [None]
